FAERS Safety Report 26091121 (Version 1)
Quarter: 2025Q4

REPORT INFORMATION
  Report Type: Spontaneous
  Country: US (occurrence: None)
  Receive Date: 20251126
  Receipt Date: 20251126
  Transmission Date: 20260118
  Serious: Yes (Hospitalization, Other)
  Sender: APOTEX
  Company Number: US-APOTEX-2025AP033044

PATIENT
  Age: 14 Year
  Sex: Female

DRUGS (1)
  1. ACETAMINOPHEN [Suspect]
     Active Substance: ACETAMINOPHEN
     Indication: Product used for unknown indication
     Dosage: 20 GRAM

REACTIONS (4)
  - Encephalopathy [Recovering/Resolving]
  - Overdose [Recovering/Resolving]
  - Analgesic drug level increased [Recovering/Resolving]
  - Toxicity to various agents [Recovering/Resolving]
